FAERS Safety Report 16964096 (Version 1)
Quarter: 2019Q4

REPORT INFORMATION
  Report Type: Report from Study
  Country: IT (occurrence: IT)
  Receive Date: 20191026
  Receipt Date: 20191026
  Transmission Date: 20200122
  Serious: Yes (Death)
  Sender: FDA-Public Use
  Company Number: IT-AMGEN-ITACT2019175627

PATIENT
  Age: 60 Year
  Sex: Male

DRUGS (24)
  1. VINCRISTINA [VINCRISTINE] [Suspect]
     Active Substance: VINCRISTINE
     Dosage: 2 MILLIGRAM
     Route: 042
     Dates: start: 20190304, end: 20190304
  2. DESAMETASONE [Suspect]
     Active Substance: DEXAMETHASONE
     Indication: ACUTE LYMPHOCYTIC LEUKAEMIA
     Dosage: 20 MILLIGRAM
     Route: 042
     Dates: start: 20190211, end: 20190215
  3. OSELTAMIVIR [Concomitant]
     Active Substance: OSELTAMIVIR
     Dosage: UNK
     Dates: start: 20190305, end: 20190309
  4. LACTULOSE. [Concomitant]
     Active Substance: LACTULOSE
     Dosage: UNK
     Dates: start: 20190219
  5. RANITIDIN [Concomitant]
     Active Substance: RANITIDINE HYDROCHLORIDE
     Dosage: UNK
     Route: 042
     Dates: start: 20190201
  6. MEROPENEM. [Concomitant]
     Active Substance: MEROPENEM
     Dosage: UNK
     Dates: start: 20190312
  7. G-CSF [Concomitant]
     Active Substance: GRANULOCYTE COLONY-STIMULATING FACTOR NOS
     Dosage: UNK
     Dates: start: 20190218
  8. BLINATUMOMAB [Suspect]
     Active Substance: BLINATUMOMAB
     Indication: ACUTE LYMPHOCYTIC LEUKAEMIA
     Dosage: UNK
     Route: 065
  9. METHYLPREDNISOLONE. [Suspect]
     Active Substance: METHYLPREDNISOLONE
     Indication: ACUTE LYMPHOCYTIC LEUKAEMIA
     Dosage: 40 MILLIGRAM
     Route: 042
     Dates: start: 20190205, end: 20190209
  10. PEG/L-ASPARAGINASE [Suspect]
     Active Substance: PEGASPARGASE
     Indication: ACUTE LYMPHOCYTIC LEUKAEMIA
     Dosage: 1900 MILLIGRAM
     Route: 042
     Dates: start: 20190220, end: 20190220
  11. URSODEOXYCHOLIC ACID [Concomitant]
     Active Substance: URSODIOL
     Dosage: UNK
     Dates: start: 20190309
  12. BACTRIM [Concomitant]
     Active Substance: SULFAMETHOXAZOLE\TRIMETHOPRIM
     Dosage: UNK
     Dates: start: 20190201
  13. TROPISETRON [Concomitant]
     Active Substance: TROPISETRON
     Dosage: UNK
     Dates: start: 20190205, end: 20190308
  14. VINCRISTINA [VINCRISTINE] [Suspect]
     Active Substance: VINCRISTINE
     Dosage: 2 MILLIGRAM
     Route: 042
     Dates: start: 20190218, end: 20190218
  15. VINCRISTINA [VINCRISTINE] [Suspect]
     Active Substance: VINCRISTINE
     Dosage: 2 MILLIGRAM
     Route: 042
     Dates: start: 20190225, end: 20190225
  16. IDARUBICINA [IDARUBICIN] [Suspect]
     Active Substance: IDARUBICIN
     Indication: ACUTE LYMPHOCYTIC LEUKAEMIA
     Dosage: 17 MILLIGRAM
     Route: 042
     Dates: start: 20190211, end: 20190212
  17. DESAMETASONE [Suspect]
     Active Substance: DEXAMETHASONE
     Dosage: 20 MILLIGRAM
     Route: 042
     Dates: start: 20190225, end: 20190301
  18. FLEBOCORTID [Concomitant]
     Active Substance: HYDROCORTISONE SODIUM SUCCINATE
     Dosage: 100 MILLIGRAM
     Dates: end: 20190220
  19. TAMSULOSINE [TAMSULOSIN] [Concomitant]
     Active Substance: TAMSULOSIN
     Dosage: UNK
     Dates: start: 20190201
  20. LASIX [Concomitant]
     Active Substance: FUROSEMIDE
     Dosage: UNK
     Route: 042
     Dates: start: 20190201
  21. ENDOXAN [CYCLOPHOSPHAMIDE] [Suspect]
     Active Substance: CYCLOPHOSPHAMIDE
     Indication: ACUTE LYMPHOCYTIC LEUKAEMIA
     Dosage: 390 MILLIGRAM
     Route: 042
     Dates: start: 20190207, end: 20190209
  22. VINCRISTINA [VINCRISTINE] [Suspect]
     Active Substance: VINCRISTINE
     Indication: ACUTE LYMPHOCYTIC LEUKAEMIA
     Dosage: 2 MILLIGRAM
     Route: 042
     Dates: start: 20190211, end: 20190211
  23. ALBUMIN [Concomitant]
     Active Substance: ALBUMIN HUMAN
     Dosage: UNK
     Route: 042
     Dates: start: 20190307
  24. AMIKACIN. [Concomitant]
     Active Substance: AMIKACIN
     Dosage: UNK
     Route: 042
     Dates: start: 20190304

REACTIONS (1)
  - Hyperammonaemia [Fatal]

NARRATIVE: CASE EVENT DATE: 20190312
